FAERS Safety Report 11515889 (Version 1)
Quarter: 2015Q3

REPORT INFORMATION
  Report Type: Spontaneous
  Country: US (occurrence: US)
  Receive Date: 20150916
  Receipt Date: 20150916
  Transmission Date: 20151125
  Serious: Yes (Other)
  Sender: FDA-Public Use
  Company Number: US-ALLERGAN-1518578US

PATIENT
  Age: 51 Year
  Sex: Female
  Weight: 63.49 kg

DRUGS (2)
  1. FML [Suspect]
     Active Substance: FLUOROMETHOLONE
     Indication: DERMATITIS
     Dosage: UNK, 2-3 TIMES/DAY
     Route: 047
  2. FML [Suspect]
     Active Substance: FLUOROMETHOLONE
     Indication: EYE IRRITATION

REACTIONS (7)
  - Drug hypersensitivity [Recovered/Resolved]
  - Skin discolouration [Not Recovered/Not Resolved]
  - Swelling [Not Recovered/Not Resolved]
  - Scar [Not Recovered/Not Resolved]
  - Facial pain [Unknown]
  - Vision blurred [Not Recovered/Not Resolved]
  - Road traffic accident [Unknown]

NARRATIVE: CASE EVENT DATE: 2014
